FAERS Safety Report 7130759-4 (Version None)
Quarter: 2010Q4

REPORT INFORMATION
  Report Type: 
  Country: None (occurrence: None)
  Receive Date: 20101201
  Receipt Date: 20101119
  Transmission Date: 20110411
  Serious: Yes (Other)
  Sender: FDA-Public Use
  Company Number: JP-ROCHE-730872

PATIENT
  Sex: Female

DRUGS (44)
  1. TOCILIZUMAB [Suspect]
     Indication: JUVENILE ARTHRITIS
     Route: 041
     Dates: start: 20091214, end: 20091214
  2. TOCILIZUMAB [Suspect]
     Route: 041
     Dates: start: 20091228, end: 20100121
  3. TOCILIZUMAB [Suspect]
     Route: 041
     Dates: start: 20100204, end: 20100401
  4. TOCILIZUMAB [Suspect]
     Route: 041
     Dates: start: 20100415, end: 20100415
  5. TOCILIZUMAB [Suspect]
     Route: 041
     Dates: start: 20100427, end: 20100427
  6. TOCILIZUMAB [Suspect]
     Route: 041
     Dates: start: 20100512, end: 20100708
  7. TOCILIZUMAB [Suspect]
     Route: 041
     Dates: start: 20100722, end: 20100722
  8. TOCILIZUMAB [Suspect]
     Route: 041
     Dates: start: 20100804, end: 20100819
  9. TOCILIZUMAB [Suspect]
     Route: 041
     Dates: start: 20100917, end: 20100930
  10. TOCILIZUMAB [Suspect]
     Route: 041
     Dates: start: 20101018, end: 20101018
  11. TOCILIZUMAB [Suspect]
     Route: 041
     Dates: start: 20101101, end: 20101116
  12. ALFAROL [Concomitant]
     Route: 048
     Dates: start: 20100123, end: 20100213
  13. ALFAROL [Concomitant]
     Route: 048
     Dates: start: 20100317, end: 20100609
  14. PREDONINE [Concomitant]
     Route: 048
     Dates: start: 20091014, end: 20091026
  15. PREDONINE [Concomitant]
     Route: 048
     Dates: start: 20091027, end: 20091109
  16. PREDONINE [Concomitant]
     Route: 048
     Dates: start: 20091110, end: 20091228
  17. PREDONINE [Concomitant]
     Route: 048
     Dates: start: 20091229, end: 20100108
  18. PREDONINE [Concomitant]
     Route: 048
     Dates: start: 20100109, end: 20100121
  19. PREDONINE [Concomitant]
     Route: 048
     Dates: start: 20100122, end: 20100204
  20. PREDONINE [Concomitant]
     Route: 048
     Dates: start: 20100205, end: 20100218
  21. PREDONINE [Concomitant]
     Route: 048
     Dates: start: 20100219, end: 20100303
  22. PREDONINE [Concomitant]
     Route: 048
     Dates: start: 20100314, end: 20100317
  23. PREDONINE [Concomitant]
     Route: 048
     Dates: start: 20100318, end: 20100401
  24. PREDONINE [Concomitant]
     Route: 048
     Dates: start: 20100402, end: 20100415
  25. PREDONINE [Concomitant]
     Route: 048
     Dates: start: 20100416, end: 20100427
  26. PREDONINE [Concomitant]
     Route: 048
     Dates: start: 20100428, end: 20100512
  27. PREDONINE [Concomitant]
     Route: 048
     Dates: start: 20100513, end: 20100527
  28. PREDONINE [Concomitant]
     Route: 048
     Dates: start: 20100528, end: 20100804
  29. PREDONINE [Concomitant]
     Route: 048
     Dates: start: 20100805, end: 20100914
  30. PREDONINE [Concomitant]
     Route: 048
     Dates: start: 20100915, end: 20100917
  31. PREDONINE [Concomitant]
     Route: 048
     Dates: start: 20100918
  32. IBRUPROFEN [Concomitant]
     Dosage: FORM: PERORAL AGENT
     Route: 048
     Dates: start: 20091007, end: 20100122
  33. IBRUPROFEN [Concomitant]
     Route: 048
     Dates: start: 20100123, end: 20100219
  34. METOLATE [Concomitant]
     Route: 048
     Dates: start: 20091007, end: 20091109
  35. GEFANIL [Concomitant]
     Dosage: FORM: PERORAL AGENT
     Route: 048
     Dates: start: 20091014
  36. ISCOTIN [Concomitant]
     Route: 048
     Dates: start: 20091214, end: 20100624
  37. CEFACLOR [Concomitant]
     Dosage: FORM: PERORAL AGENT
     Route: 048
     Dates: start: 20091215, end: 20091217
  38. MINOMYCIN [Concomitant]
     Dosage: FOPRM: FORM: PERORAL AGENT
     Route: 048
     Dates: start: 20100109, end: 20100124
  39. MINOMYCIN [Concomitant]
     Route: 048
     Dates: start: 20100220, end: 20100303
  40. DIFFERIN [Concomitant]
     Dosage: NOTE: PROPER QUANTITY
     Route: 003
     Dates: start: 20100109
  41. DALACIN [Concomitant]
     Dosage: NOTE: PROPER QUANTITY
     Route: 003
     Dates: start: 20100109
  42. MEVALOTIN [Concomitant]
     Route: 048
     Dates: start: 20100303, end: 20100722
  43. PYRIDOXAL CALCIUM PHOSPHATE [Concomitant]
     Route: 048
     Dates: start: 20100317, end: 20100708
  44. METHOTREXATE [Concomitant]
     Route: 048
     Dates: start: 20091110

REACTIONS (2)
  - ANAL HAEMORRHAGE [None]
  - MELAENA [None]
